FAERS Safety Report 20228333 (Version 14)
Quarter: 2022Q3

REPORT INFORMATION
  Report Type: Report from Study
  Country: US (occurrence: US)
  Receive Date: 20211224
  Receipt Date: 20220906
  Transmission Date: 20221027
  Serious: Yes (Death, Life-Threatening, Hospitalization)
  Sender: FDA-Public Use
  Company Number: US-BRISTOL-MYERS SQUIBB COMPANY-BMS-2021-138949

PATIENT
  Age: 86 Year
  Sex: Male
  Weight: 90.00 kg

DRUGS (17)
  1. FERRIC POLYSACCHARIDE COMPLEX [Concomitant]
     Active Substance: FERRIC POLYSACCHARIDE COMPLEX
     Indication: Muscle spasms
     Dosage: 1 DOSAGE FORM=100 UNIT NOS, QD
     Route: 048
  2. LOSARTAN [Concomitant]
     Active Substance: LOSARTAN
     Indication: Cardiac disorder
     Dosage: 25 MILLIGRAM, QD
     Route: 048
  3. MAGNESIUM OXIDE [Concomitant]
     Active Substance: MAGNESIUM OXIDE
     Indication: Muscle spasms
     Dosage: 100, QD
     Route: 048
  4. METOPROLOL SUCCINATE [Concomitant]
     Active Substance: METOPROLOL SUCCINATE
     Indication: Cardiac disorder
     Dosage: 25 MILLIGRAM, QD
     Route: 048
  5. METOPROLOL SUCCINATE [Concomitant]
     Active Substance: METOPROLOL SUCCINATE
     Dosage: 25 MILLIGRAM, QD
     Route: 048
  6. PRILOSEC [Concomitant]
     Active Substance: OMEPRAZOLE MAGNESIUM
     Indication: Product used for unknown indication
     Dosage: 10 MILLIGRAM, QD
     Route: 048
  7. BACTRIM DS [Concomitant]
     Active Substance: SULFAMETHOXAZOLE\TRIMETHOPRIM
     Indication: Prophylaxis
     Dosage: 800 MILLIGRAM-160MG, 3 TIMES PER WEEKS X30 DAYS
     Route: 048
  8. TAMSULOSIN [Concomitant]
     Active Substance: TAMSULOSIN
     Indication: Prostatomegaly
     Dosage: 0.4, QD
     Route: 065
     Dates: start: 20210623
  9. ACETAMINOPHEN [Concomitant]
     Active Substance: ACETAMINOPHEN
     Indication: Pain
     Dosage: 325, Q.4H
  10. ASPIRIN [Concomitant]
     Active Substance: ASPIRIN
     Indication: Product used for unknown indication
     Dosage: 81 MILLIGRAM, QD
     Route: 048
     Dates: start: 20210624
  11. VITAMIN D3 [Concomitant]
     Active Substance: CHOLECALCIFEROL
     Indication: Supplementation therapy
     Dosage: 5000 INTERNATIONAL UNIT, QD
     Route: 048
     Dates: start: 20210623
  12. CHONDROITIN [Concomitant]
     Active Substance: CHONDROITIN
     Indication: Supplementation therapy
     Dosage: 1200, QD
     Route: 048
  13. GLUCOSAMINE [Concomitant]
     Active Substance: GLUCOSAMINE
     Indication: Arthralgia
     Dosage: 1500, QD
     Route: 048
  14. PREDNISONE [Concomitant]
     Active Substance: PREDNISONE
     Indication: Product used for unknown indication
     Dosage: 40 MILLIGRAM, QD
     Route: 065
     Dates: start: 20211112
  15. PREDNISONE [Concomitant]
     Active Substance: PREDNISONE
     Dosage: 180 MILLIGRAM, FOR 3 DAYS THEN TAPER DOWN BY 10 MG EVERY THREE DAYS
     Route: 065
     Dates: start: 20211201
  16. PREDNISONE [Concomitant]
     Active Substance: PREDNISONE
     Dosage: 140 MILLIGRAM, QD
     Route: 065
     Dates: start: 202112
  17. ATORVASTATIN [Concomitant]
     Active Substance: ATORVASTATIN
     Indication: Cardiac disorder
     Dosage: 10 MILLIGRAM, QD
     Route: 048

REACTIONS (1)
  - Myositis [Fatal]

NARRATIVE: CASE EVENT DATE: 20211215
